FAERS Safety Report 21042937 (Version 1)
Quarter: 2022Q3

REPORT INFORMATION
  Report Type: Other
  Country: US (occurrence: None)
  Receive Date: 20220705
  Receipt Date: 20220705
  Transmission Date: 20221026
  Serious: Yes (Other)
  Sender: FDA-Public Use
  Company Number: US-ROCHE-3126674

PATIENT
  Sex: Female

DRUGS (2)
  1. AVASTIN [Suspect]
     Active Substance: BEVACIZUMAB
     Indication: Ovarian cancer
     Dosage: INFUSE 15MG/KG (1450MG)  INTRAVENOUSLY EVERY 3 WEEK(S)
     Route: 042
  2. AVASTIN [Suspect]
     Active Substance: BEVACIZUMAB
     Dosage: INFUSE 15MG/KG (1450MG)  INTRAVENOUSLY EVERY 3 WEEK(S)
     Route: 042

REACTIONS (1)
  - Lung neoplasm malignant [Unknown]
